FAERS Safety Report 19002577 (Version 1)
Quarter: 2021Q1

REPORT INFORMATION
  Report Type: Spontaneous
  Country: US (occurrence: US)
  Receive Date: 20210312
  Receipt Date: 20210312
  Transmission Date: 20210420
  Serious: No
  Sender: FDA-Public Use
  Company Number: US-ALLERGAN-2028843US

PATIENT
  Age: 54 Year
  Sex: Female

DRUGS (5)
  1. ESTRACE [Suspect]
     Active Substance: ESTRADIOL
     Indication: ATROPHIC VULVOVAGINITIS
     Dosage: 1 DF, BI?WEEKLY
     Route: 067
     Dates: start: 20200712
  2. ESTRACE [Suspect]
     Active Substance: ESTRADIOL
     Indication: SEXUAL DYSFUNCTION
     Dosage: 1 DF, QPM
     Route: 067
     Dates: start: 20200628, end: 20200712
  3. SERIPHOS [Concomitant]
     Indication: CORTISOL INCREASED
  4. MIRTAZAPINE. [Concomitant]
     Active Substance: MIRTAZAPINE
     Indication: DEPRESSION
  5. MIRTAZAPINE. [Concomitant]
     Active Substance: MIRTAZAPINE
     Indication: INSOMNIA

REACTIONS (2)
  - Application site pain [Not Recovered/Not Resolved]
  - Anxiety [Not Recovered/Not Resolved]
